FAERS Safety Report 20208600 (Version 1)
Quarter: 2021Q4

REPORT INFORMATION
  Report Type: Spontaneous
  Country: CN (occurrence: CN)
  Receive Date: 20211220
  Receipt Date: 20211220
  Transmission Date: 20220303
  Serious: Yes (Other)
  Sender: FDA-Public Use
  Company Number: CN-PFIZER INC-202101733048

PATIENT
  Age: 28 Year
  Sex: Male

DRUGS (2)
  1. PALBOCICLIB [Suspect]
     Active Substance: PALBOCICLIB
     Indication: Glioblastoma multiforme
     Dosage: 125 MG, DAILY
  2. BEVACIZUMAB [Suspect]
     Active Substance: BEVACIZUMAB
     Indication: Glioblastoma multiforme
     Dosage: 600 MG

REACTIONS (3)
  - Myelosuppression [Unknown]
  - Gastrointestinal disorder [Unknown]
  - Off label use [Unknown]
